FAERS Safety Report 12544725 (Version 1)
Quarter: 2020Q3

REPORT INFORMATION
  Report Type: Report from Study
  Country: FR (occurrence: FR)
  Receive Date: 20160711
  Receipt Date: 20160711
  Transmission Date: 20201105
  Serious: Yes (Hospitalization)
  Sender: FDA-Public Use
  Company Number: FR-ROCHE-1777750

PATIENT
  Age: 65 Year
  Sex: Male
  Weight: 84.1 kg

DRUGS (27)
  1. ZELITREX [Concomitant]
     Active Substance: VALACYCLOVIR HYDROCHLORIDE
     Indication: INFECTION
     Route: 048
     Dates: start: 20160204
  2. HEXTRIL [Concomitant]
     Indication: MUCOSAL INFLAMMATION
     Route: 048
     Dates: start: 20160223
  3. RITUXIMAB. [Suspect]
     Active Substance: RITUXIMAB
     Indication: NON-HODGKIN^S LYMPHOMA
     Dosage: MOST RECENT DOSE (720 MG) PRIOR TO THE EVENT ONSET: 10/JUN/2016
     Route: 042
     Dates: start: 20160201
  4. DOXORUBICIN [Suspect]
     Active Substance: DOXORUBICIN
     Indication: NON-HODGKIN^S LYMPHOMA
     Dosage: MOST RECENT DOSE (96 MG) PRIOR TO THE EVENT ONSET: 10/JUN/2016
     Route: 042
     Dates: start: 20160201
  5. LEDERFOLIN [Concomitant]
     Active Substance: LEUCOVORIN CALCIUM
     Indication: INFECTION
     Route: 048
     Dates: start: 20160205
  6. MOPRAL [Concomitant]
     Active Substance: OMEPRAZOLE
     Indication: GASTROOESOPHAGEAL REFLUX DISEASE
     Route: 048
     Dates: start: 20160205
  7. MYCOSTATINE [Concomitant]
     Active Substance: NYSTATIN
     Indication: MUCOSAL INFLAMMATION
     Route: 048
     Dates: start: 20160223
  8. PARACETAMOL [Concomitant]
     Active Substance: ACETAMINOPHEN
     Indication: PREMEDICATION
     Route: 048
     Dates: start: 20160520, end: 20160520
  9. PARACETAMOL [Concomitant]
     Active Substance: ACETAMINOPHEN
     Route: 048
     Dates: start: 20160610, end: 20160610
  10. CETIRIZINE [Concomitant]
     Active Substance: CETIRIZINE HYDROCHLORIDE
     Route: 048
     Dates: start: 20160610, end: 20160610
  11. NEULASTA [Concomitant]
     Active Substance: PEGFILGRASTIM
     Indication: PROPHYLAXIS
     Route: 058
     Dates: start: 20160523, end: 20160523
  12. EMEND [Concomitant]
     Active Substance: APREPITANT
     Indication: VOMITING
     Route: 048
     Dates: start: 20160611, end: 20160612
  13. CETIRIZINE [Concomitant]
     Active Substance: CETIRIZINE HYDROCHLORIDE
     Indication: PREMEDICATION
     Route: 048
     Dates: start: 20160520, end: 20160520
  14. CYCLOPHOSPHAMIDE. [Suspect]
     Active Substance: CYCLOPHOSPHAMIDE
     Indication: NON-HODGKIN^S LYMPHOMA
     Dosage: MOST RECENT DOSE (1448 MG) PRIOR TO THE EVENT ONSET: 10/JUN/2016
     Route: 042
     Dates: start: 20160201
  15. ZOPHREN [Concomitant]
     Active Substance: ONDANSETRON
     Indication: NAUSEA
     Dosage: ANTI EMETIC
     Route: 042
     Dates: start: 20160201
  16. SPASFON (FRANCE) [Concomitant]
     Active Substance: PHLOROGLUCINOL\1,3,5-TRIMETHOXYBENZENE
     Indication: ABDOMINAL PAIN
     Route: 048
     Dates: start: 20160223
  17. ZOPHREN [Concomitant]
     Active Substance: ONDANSETRON
     Indication: VOMITING
     Route: 042
     Dates: start: 20160610, end: 20160610
  18. ZOPHREN [Concomitant]
     Active Substance: ONDANSETRON
     Indication: PROPHYLAXIS
     Route: 042
     Dates: start: 20160520, end: 20160520
  19. ZYLORIC [Concomitant]
     Active Substance: ALLOPURINOL
     Indication: HYPERURICAEMIA
     Route: 048
     Dates: start: 20160129
  20. SODIUM BICARBONATE. [Concomitant]
     Active Substance: SODIUM BICARBONATE
     Indication: MUCOSAL INFLAMMATION
     Route: 048
     Dates: start: 20160223
  21. EMEND [Concomitant]
     Active Substance: APREPITANT
     Indication: NAUSEA
     Route: 048
     Dates: start: 20160610, end: 20160610
  22. POLATUZUMAB VEDOTIN. [Suspect]
     Active Substance: POLATUZUMAB VEDOTIN
     Indication: NON-HODGKIN^S LYMPHOMA
     Dosage: MOST RECENT DOSE (139 MG) PRIOR TO EVENT ONSET: 10/JUN/2016
     Route: 042
     Dates: start: 20160202
  23. PREDNISONE. [Suspect]
     Active Substance: PREDNISONE
     Indication: NON-HODGKIN^S LYMPHOMA
     Dosage: MOST RECENT DOSE (100 MG) PRIOR TO EVENT ONSET: 14/JUN/2016
     Route: 048
     Dates: start: 20160129
  24. XANAX [Concomitant]
     Active Substance: ALPRAZOLAM
     Indication: ANXIETY
     Route: 048
     Dates: start: 20160131
  25. PRIMPERAN [Concomitant]
     Active Substance: METOCLOPRAMIDE HYDROCHLORIDE
     Indication: NAUSEA
     Route: 048
  26. NEULASTA [Concomitant]
     Active Substance: PEGFILGRASTIM
     Indication: NEUTROPENIA
     Route: 058
     Dates: start: 20160613, end: 20160613
  27. BACTRIM [Concomitant]
     Active Substance: SULFAMETHOXAZOLE\TRIMETHOPRIM
     Indication: INFECTION
     Route: 048
     Dates: start: 20160205

REACTIONS (1)
  - Arthritis [Recovered/Resolved with Sequelae]

NARRATIVE: CASE EVENT DATE: 20160614
